FAERS Safety Report 4705563-4 (Version None)
Quarter: 2005Q2

REPORT INFORMATION
  Report Type: 
  Country: None (occurrence: None)
  Receive Date: 20050629
  Receipt Date: 20041206
  Transmission Date: 20051028
  Serious: Yes (Death, Life-Threatening, Other)
  Sender: FDA-Public Use
  Company Number: 200421888GDDC

PATIENT
  Age: 86 Year
  Sex: Female
  Weight: 87 kg

DRUGS (6)
  1. HEPARIN [Suspect]
     Indication: MYOCARDIAL INFARCTION
  2. HEPARIN [Suspect]
     Indication: MYOCARDIAL INFARCTION
     Dosage: ONCE IVB
     Route: 040
     Dates: start: 20041205, end: 20041205
  3. HEPARIN [Suspect]
     Indication: MYOCARDIAL INFARCTION
     Dosage: ONCE SC
     Route: 058
     Dates: start: 20041205, end: 20041205
  4. HEPARIN [Suspect]
     Indication: MYOCARDIAL INFARCTION
     Dosage: CONT IVF
     Route: 042
     Dates: start: 20041205, end: 20041205
  5. ASPIRIN [Suspect]
     Indication: MYOCARDIAL INFARCTION
     Dosage: 500 MG QD PO
     Route: 048
     Dates: start: 20041205, end: 20041205
  6. ALTEPLASE SOLUTION FOR INFUSION [Suspect]
     Indication: MYOCARDIAL INFARCTION
     Dosage: 100 MG ONCE IV
     Route: 042
     Dates: start: 20041205, end: 20041205

REACTIONS (8)
  - ATRIAL FIBRILLATION [None]
  - ATRIOVENTRICULAR BLOCK COMPLETE [None]
  - BLOOD PRESSURE ABNORMAL [None]
  - BLOOD PRESSURE DECREASED [None]
  - MYOCARDIAL RUPTURE [None]
  - PULSE ABSENT [None]
  - RESPIRATORY ARREST [None]
  - RHYTHM IDIOVENTRICULAR [None]
